FAERS Safety Report 5282976-6 (Version None)
Quarter: 2007Q1

REPORT INFORMATION
  Report Type: 
  Country: None (occurrence: None)
  Receive Date: 20070328
  Receipt Date: 20070328
  Transmission Date: 20070707
  Serious: Yes (Other)
  Sender: FDA-Public Use
  Company Number: None

PATIENT
  Age: 76 Year
  Sex: Female
  Weight: 78 kg

DRUGS (7)
  1. ZETIA [Suspect]
  2. LISINOPRIL [Concomitant]
  3. OMEPRAZOLE [Concomitant]
  4. INSULIN, GLARGINE, HUMAN [Concomitant]
  5. INSULIN SYRINGE [Concomitant]
  6. METFORMIN HCL [Concomitant]
  7. HYDROXYUREA [Concomitant]

REACTIONS (2)
  - NAUSEA [None]
  - VOMITING [None]
